FAERS Safety Report 7599685-0 (Version None)
Quarter: 2011Q3

REPORT INFORMATION
  Report Type: 
  Country: None (occurrence: None)
  Receive Date: 20110711
  Receipt Date: 20110628
  Transmission Date: 20111222
  Serious: Yes (Other)
  Sender: FDA-Public Use
  Company Number: CA-ELI_LILLY_AND_COMPANY-CA201106008059

PATIENT
  Sex: Male

DRUGS (13)
  1. ZYPREXA [Suspect]
     Dosage: 10 MG, EACH EVENING
  2. VIDEX [Concomitant]
  3. ALLOPURINOL [Concomitant]
  4. PREZISTA [Concomitant]
  5. KALETRA [Concomitant]
  6. ZIDOVUDINE [Concomitant]
  7. PROCYCLIDINE HYDROCHLORIDE 2MG TAB [Concomitant]
  8. NORVIR [Concomitant]
  9. ABACAVIR SULFATE AND LAMIVUDINE [Concomitant]
  10. AMCINONIDE [Concomitant]
  11. SULFATRIM [Concomitant]
  12. TERBINAFINE HCL [Concomitant]
  13. COLCHICINE [Concomitant]

REACTIONS (4)
  - BLOOD CHOLESTEROL INCREASED [None]
  - WEIGHT INCREASED [None]
  - HYPERGLYCAEMIA [None]
  - BLOOD TRIGLYCERIDES INCREASED [None]
